FAERS Safety Report 5659406-5 (Version None)
Quarter: 2008Q1

REPORT INFORMATION
  Report Type: 
  Country: None (occurrence: None)
  Receive Date: 20080311
  Receipt Date: 20080222
  Transmission Date: 20080703
  Serious: Yes (Life-Threatening, Hospitalization)
  Sender: FDA-Public Use
  Company Number: GB-RANBAXY-2008RR-13298

PATIENT

DRUGS (5)
  1. METFORMIN 850MG TABLETS [Suspect]
     Indication: DIABETES MELLITUS
     Dosage: 850 MG, BID
     Route: 048
     Dates: end: 20080210
  2. AMARYL [Concomitant]
     Dosage: 4 MG, UNK
     Dates: end: 20080210
  3. GABAPENTIN BASICS B 600MG FILMTABLETTEN [Concomitant]
     Indication: BACK PAIN
     Dosage: 600 MG, TID
     Route: 048
     Dates: end: 20080210
  4. HUMALOG [Concomitant]
     Indication: DIABETES MELLITUS
     Dosage: UNK
     Route: 058
  5. VITAMIN B-12 [Concomitant]
     Route: 048

REACTIONS (7)
  - CARDIAC ARREST [None]
  - DIARRHOEA [None]
  - HYPERKALAEMIA [None]
  - LACTIC ACIDOSIS [None]
  - MALAISE [None]
  - RENAL FAILURE ACUTE [None]
  - VOMITING [None]
